FAERS Safety Report 16750872 (Version 1)
Quarter: 2019Q3

REPORT INFORMATION
  Report Type: Spontaneous
  Country: NL (occurrence: NL)
  Receive Date: 20190828
  Receipt Date: 20190828
  Transmission Date: 20191005
  Serious: Yes (Other)
  Sender: FDA-Public Use
  Company Number: NL-MYLANLABS-2019M1080368

PATIENT
  Sex: Male
  Weight: 74 kg

DRUGS (1)
  1. MINOCYCLINE [Suspect]
     Active Substance: MINOCYCLINE HYDROCHLORIDE
     Indication: ROSACEA
     Dosage: 1 X DAAGS 1 TABLET
     Route: 048
     Dates: start: 20190328, end: 20190402

REACTIONS (1)
  - Pneumonia [Recovered/Resolved]
